FAERS Safety Report 9795139 (Version 1)
Quarter: 2014Q1

REPORT INFORMATION
  Report Type: Spontaneous
  Country: US (occurrence: US)
  Receive Date: 20140103
  Receipt Date: 20140103
  Transmission Date: 20141002
  Serious: No
  Sender: FDA-Public Use
  Company Number: US-009507513-1312USA011850

PATIENT
  Age: 68 Year
  Sex: Male

DRUGS (2)
  1. NASONEX [Suspect]
     Indication: SINUS DISORDER
     Dosage: 50 MCG/ONE SPRAY IN EACH NOSTRIL-TWICE DAILY
     Route: 045
     Dates: start: 201212
  2. ADVAIR [Concomitant]
     Dosage: UNK

REACTIONS (1)
  - Drug ineffective [Unknown]
